FAERS Safety Report 19252726 (Version 1)
Quarter: 2021Q2

REPORT INFORMATION
  Report Type: Spontaneous
  Country: DE (occurrence: DE)
  Receive Date: 20210512
  Receipt Date: 20210512
  Transmission Date: 20210717
  Serious: Yes (Hospitalization)
  Sender: FDA-Public Use
  Company Number: DE-UNICHEM PHARMACEUTICALS (USA) INC-UCM202105-000415

PATIENT
  Age: 17 Year
  Sex: Male

DRUGS (2)
  1. BACLOFEN. [Suspect]
     Active Substance: BACLOFEN
     Indication: APALLIC SYNDROME
     Dosage: UNKNOWN
     Route: 037
  2. BACLOFEN. [Suspect]
     Active Substance: BACLOFEN
     Indication: MUSCLE SPASTICITY
     Dosage: UNKNOWN
     Route: 048

REACTIONS (5)
  - Withdrawal syndrome [Recovered/Resolved]
  - Muscle tightness [Recovered/Resolved]
  - Hyperhidrosis [Recovered/Resolved]
  - Blood creatine phosphokinase increased [Recovered/Resolved]
  - Tremor [Recovered/Resolved]
